FAERS Safety Report 20912214 (Version 1)
Quarter: 2022Q2

REPORT INFORMATION
  Report Type: Spontaneous
  Country: US (occurrence: US)
  Receive Date: 20220603
  Receipt Date: 20220603
  Transmission Date: 20220721
  Serious: No
  Sender: FDA-Public Use
  Company Number: US-Ipsen Biopharmaceuticals, Inc.-2022-15361

PATIENT
  Sex: Female

DRUGS (11)
  1. DYSPORT [Suspect]
     Active Substance: ABOBOTULINUMTOXINA
     Indication: Muscle spasms
     Dosage: 1500 IU
     Route: 030
  2. CHOLESTYRAMINE [Concomitant]
     Active Substance: CHOLESTYRAMINE
  3. ZETIA [Concomitant]
     Active Substance: EZETIMIBE
  4. MACROBID [Concomitant]
     Active Substance: NITROFURANTOIN\NITROFURANTOIN MONOHYDRATE
  5. OMEPRAZOLE [Concomitant]
     Active Substance: OMEPRAZOLE
  6. AZITHROMYCIN [Concomitant]
     Active Substance: AZITHROMYCIN
  7. METHYLPREDNISOLONE [Concomitant]
     Active Substance: METHYLPREDNISOLONE
     Dosage: DOSE P
  8. AMITIZA [Concomitant]
     Active Substance: LUBIPROSTONE
  9. LISINOPRIL AND HYDROCHLOROTHIAZIDE [Concomitant]
     Active Substance: HYDROCHLOROTHIAZIDE\LISINOPRIL
  10. PREMARIN [Concomitant]
     Active Substance: ESTROGENS, CONJUGATED
  11. LEVOTHYROXINE SODIUM [Concomitant]
     Active Substance: LEVOTHYROXINE SODIUM

REACTIONS (3)
  - Injection site pain [Not Recovered/Not Resolved]
  - Injection site discomfort [Not Recovered/Not Resolved]
  - Drug ineffective [Unknown]
